FAERS Safety Report 18642346 (Version 1)
Quarter: 2020Q4

REPORT INFORMATION
  Report Type: Spontaneous
  Country: US (occurrence: US)
  Receive Date: 20201221
  Receipt Date: 20201221
  Transmission Date: 20210114
  Serious: No
  Sender: FDA-Public Use
  Company Number: US-TEVA-2020-US-1861255

PATIENT
  Age: 41 Year
  Sex: Female

DRUGS (11)
  1. CYANOCOBALAMIN. [Concomitant]
     Active Substance: CYANOCOBALAMIN
     Dosage: 1 TABLET BY MOUTH DAILY
     Route: 048
  2. TENORMIN [Concomitant]
     Active Substance: ATENOLOL
     Dosage: 25 MILLIGRAM DAILY; NIGHTLY
     Route: 048
  3. METROGEL VAGINAL [Concomitant]
     Active Substance: METRONIDAZOLE
     Dosage: PLACE 1 APPLICATOR VAGINALLY NIGHTLY, INSERT 1 APPLICATOR OF CREAM: VAGINA FOR 5 NIGHTS
     Route: 067
  4. BIOTIN [Concomitant]
     Active Substance: BIOTIN
     Dosage: 1 TABLET BY MOUTH DAILY
     Route: 048
  5. NORCO [Concomitant]
     Active Substance: ACETAMINOPHEN\HYDROCODONE BITARTRATE
     Dosage: DOSAGE: 5-325MG; EVERY 6 HOURS AS NEEDED
     Route: 048
  6. TAMOXIFEN [Suspect]
     Active Substance: TAMOXIFEN
     Dosage: 20 MILLIGRAM DAILY;
     Route: 048
  7. CLARITIN [Concomitant]
     Active Substance: LORATADINE
     Dosage: 1 TABLET BY MOUTH DAILY
     Route: 048
  8. VITAMIN D2 [Concomitant]
     Active Substance: ERGOCALCIFEROL
     Dosage: ONCE A WEEK
     Route: 048
  9. PARAGARD T 380A [Concomitant]
     Active Substance: COPPER
     Dosage: 1 INTRACERVICAL ROUTE ONCE.
  10. EFFEXOR XR [Concomitant]
     Active Substance: VENLAFAXINE HYDROCHLORIDE
     Dosage: 75 MILLIGRAM DAILY;
     Route: 048
  11. VITAMIN C [Concomitant]
     Active Substance: ASCORBIC ACID
     Dosage: 500 MILLIGRAM DAILY;
     Route: 048

REACTIONS (1)
  - Hot flush [Recovered/Resolved]
